FAERS Safety Report 14661545 (Version 4)
Quarter: 2019Q1

REPORT INFORMATION
  Report Type: Report from Study
  Country: US (occurrence: US)
  Receive Date: 20180320
  Receipt Date: 20190321
  Transmission Date: 20190417
  Serious: Yes (Other)
  Sender: FDA-Public Use
  Company Number: PHEH2018US010787

PATIENT
  Sex: Male

DRUGS (2)
  1. COSENTYX [Suspect]
     Active Substance: SECUKINUMAB
     Indication: ANKYLOSING SPONDYLITIS
     Dosage: 150 MG, QMO
     Route: 058
     Dates: start: 201802
  2. COSENTYX [Suspect]
     Active Substance: SECUKINUMAB
     Dosage: 150 MG, ONCE EVETY TWO WEEKS
     Route: 058

REACTIONS (7)
  - Inappropriate schedule of product administration [Unknown]
  - Skin lesion [Unknown]
  - Ear infection [Unknown]
  - Lower respiratory tract infection [Unknown]
  - Hypoaesthesia [Unknown]
  - Chest pain [Unknown]
  - Constipation [Unknown]
